FAERS Safety Report 7903430-6 (Version None)
Quarter: 2011Q4

REPORT INFORMATION
  Report Type: 
  Country: None (occurrence: None)
  Receive Date: 20111109
  Receipt Date: 20111026
  Transmission Date: 20120403
  Serious: Yes (Other)
  Sender: FDA-Public Use
  Company Number: FR-CELGENEUS-056-21880-11103173

PATIENT
  Sex: Female

DRUGS (7)
  1. VELCADE [Suspect]
     Indication: MULTIPLE MYELOMA
     Dosage: 1.3 MILLIGRAM/SQ. METER
     Route: 058
     Dates: start: 20110913
  2. INNOHEP [Suspect]
     Indication: THROMBOSIS PROPHYLAXIS
     Dosage: 4500 UI ANTI-XA / 0.45 ML
     Route: 058
     Dates: start: 20110913
  3. REVLIMID [Suspect]
     Indication: MULTIPLE MYELOMA
     Dosage: 25 MILLIGRAM
     Route: 048
     Dates: start: 20110913
  4. VALACYCLOVIR HYDROCHLORIDE [Suspect]
     Dosage: 1000 MILLIGRAM
     Route: 048
     Dates: start: 20110913
  5. BACTRIM [Suspect]
     Route: 048
     Dates: start: 20110913, end: 20110923
  6. DEXAMETHASONE [Suspect]
     Indication: MULTIPLE MYELOMA
     Dosage: 40 MILLIGRAM
     Route: 048
     Dates: start: 20110913
  7. AMOXICILLIN [Suspect]
     Dosage: 2 GRAM
     Route: 048
     Dates: start: 20110913

REACTIONS (2)
  - RASH GENERALISED [None]
  - CYTOLYTIC HEPATITIS [None]
